FAERS Safety Report 9382994 (Version 1)
Quarter: 2013Q3

REPORT INFORMATION
  Report Type: Spontaneous
  Country: JP (occurrence: JP)
  Receive Date: 20130703
  Receipt Date: 20130703
  Transmission Date: 20140515
  Serious: Yes (Other)
  Sender: FDA-Public Use
  Company Number: JP-B.I. PHARMACEUTICALS,INC./RIDGEFIELD-2013-BI-17656NB

PATIENT
  Sex: Male

DRUGS (1)
  1. PRAZAXA [Suspect]
     Route: 048

REACTIONS (2)
  - Myelodysplastic syndrome [Unknown]
  - Thrombocytopenia [Not Recovered/Not Resolved]
